FAERS Safety Report 6483289 (Version 2)
Quarter: 2016Q1

REPORT INFORMATION
  Report Type: Spontaneous
  Country: BR (occurrence: BR)
  Receive Date: 20071207
  Receipt Date: 20160211
  Transmission Date: 20160526
  Serious: Yes (Other)
  Sender: FDA-Public Use
  Company Number: BR-BRISTOL-MYERS SQUIBB COMPANY-14004709

PATIENT
  Age: 22 Year
  Sex: Female

DRUGS (2)
  1. CEFEPIME DIHYDROCHLORIDE MONOHYDRATE [Suspect]
     Active Substance: CEFEPIME HYDROCHLORIDE
     Indication: PYELONEPHRITIS ACUTE
  2. CEFEPIME DIHYDROCHLORIDE MONOHYDRATE [Suspect]
     Active Substance: CEFEPIME HYDROCHLORIDE
     Indication: SEPSIS
     Dosage: UNK
     Route: 065

REACTIONS (6)
  - Maternal exposure during pregnancy [Recovered/Resolved]
  - Pneumonia [Recovering/Resolving]
  - Hypotension [Unknown]
  - Normal newborn [Recovered/Resolved]
  - Non-cardiogenic pulmonary oedema [Unknown]
  - Blood lactic acid increased [Unknown]
